FAERS Safety Report 14764409 (Version 2)
Quarter: 2018Q4

REPORT INFORMATION
  Report Type: Report from Study
  Country: BR (occurrence: BR)
  Receive Date: 20180416
  Receipt Date: 20181130
  Transmission Date: 20190204
  Serious: Yes (Other)
  Sender: FDA-Public Use
  Company Number: BR-SA-2018SA102386

PATIENT
  Age: 79 Year
  Sex: Male
  Weight: 65 kg

DRUGS (1)
  1. INSULIN GLARGINE [Suspect]
     Active Substance: INSULIN GLARGINE
     Indication: DIABETES MELLITUS
     Dosage: DOSE: 18 IU TO 22 IU
     Route: 058

REACTIONS (11)
  - Cardiac pacemaker insertion [Unknown]
  - Diabetic nephropathy [Not Recovered/Not Resolved]
  - Hypotension [Not Recovered/Not Resolved]
  - Musculoskeletal disorder [Not Recovered/Not Resolved]
  - Bedridden [Not Recovered/Not Resolved]
  - Swelling [Unknown]
  - Gait disturbance [Not Recovered/Not Resolved]
  - Pneumothorax [Unknown]
  - Blood creatinine increased [Unknown]
  - Oedema [Unknown]
  - Haemodialysis [Unknown]

NARRATIVE: CASE EVENT DATE: 201304
